FAERS Safety Report 21537124 (Version 1)
Quarter: 2022Q4

REPORT INFORMATION
  Report Type: Spontaneous
  Country: US (occurrence: US)
  Receive Date: 20221101
  Receipt Date: 20221101
  Transmission Date: 20230112
  Serious: No
  Sender: FDA-Public Use
  Company Number: US-NEUROCRINE BIOSCIENCES INC.-2022NBI07571

PATIENT

DRUGS (3)
  1. INGREZZA [Suspect]
     Active Substance: VALBENAZINE
     Indication: Tardive dyskinesia
     Dosage: 40 MILLIGRAM
     Route: 065
  2. PROZAC [Concomitant]
     Active Substance: FLUOXETINE HYDROCHLORIDE
  3. REXULTI [Concomitant]
     Active Substance: BREXPIPRAZOLE

REACTIONS (3)
  - Palpitations [Unknown]
  - Drooling [Unknown]
  - Dizziness [Unknown]
